FAERS Safety Report 25450353 (Version 1)
Quarter: 2025Q2

REPORT INFORMATION
  Report Type: Report from Study
  Country: JP (occurrence: JP)
  Receive Date: 20250618
  Receipt Date: 20250618
  Transmission Date: 20250716
  Serious: Yes (Death)
  Sender: MYLAN
  Company Number: JP-MYLANLABS-2025M1050077

PATIENT

DRUGS (12)
  1. CYCLOSPORINE [Suspect]
     Active Substance: CYCLOSPORINE
     Indication: Prophylaxis against graft versus host disease
  2. CYCLOSPORINE [Suspect]
     Active Substance: CYCLOSPORINE
     Route: 065
  3. CYCLOSPORINE [Suspect]
     Active Substance: CYCLOSPORINE
     Route: 065
  4. CYCLOSPORINE [Suspect]
     Active Substance: CYCLOSPORINE
  5. GANCICLOVIR [Suspect]
     Active Substance: GANCICLOVIR
     Indication: Cytomegalovirus enteritis
     Dosage: 5 MILLIGRAM/KILOGRAM, QD
  6. GANCICLOVIR [Suspect]
     Active Substance: GANCICLOVIR
     Dosage: 5 MILLIGRAM/KILOGRAM, QD
     Route: 065
  7. GANCICLOVIR [Suspect]
     Active Substance: GANCICLOVIR
     Dosage: 5 MILLIGRAM/KILOGRAM, QD
     Route: 065
  8. GANCICLOVIR [Suspect]
     Active Substance: GANCICLOVIR
     Dosage: 5 MILLIGRAM/KILOGRAM, QD
  9. FOSCARNET [Suspect]
     Active Substance: FOSCARNET
     Indication: Cytomegalovirus enteritis
     Dosage: 90 MILLIGRAM/KILOGRAM, QD
  10. FOSCARNET [Suspect]
     Active Substance: FOSCARNET
     Dosage: 90 MILLIGRAM/KILOGRAM, QD
     Route: 065
  11. FOSCARNET [Suspect]
     Active Substance: FOSCARNET
     Dosage: 90 MILLIGRAM/KILOGRAM, QD
     Route: 065
  12. FOSCARNET [Suspect]
     Active Substance: FOSCARNET
     Dosage: 90 MILLIGRAM/KILOGRAM, QD

REACTIONS (1)
  - Drug ineffective [Fatal]
